FAERS Safety Report 6305636-9 (Version None)
Quarter: 2009Q3

REPORT INFORMATION
  Report Type: 
  Country: None (occurrence: None)
  Receive Date: 20090806
  Receipt Date: 20090730
  Transmission Date: 20100115
  Serious: Yes (Hospitalization)
  Sender: FDA-Public Use
  Company Number: 2009JP003566

PATIENT
  Age: 85 Year
  Sex: Male
  Weight: 55.3 kg

DRUGS (19)
  1. VESICARE [Suspect]
     Dosage: 5 MG, UID/QD, ORAL
     Route: 048
     Dates: start: 20090513, end: 20090605
  2. GOSHAJINKIGAN(HERBAL EXTRACT NOS) GRANULE [Suspect]
     Dosage: 2.5 G, TIID, ORAL
     Route: 048
     Dates: start: 20090513, end: 20090605
  3. URIE(SILODOSIN)CAPSULE [Suspect]
     Dosage: 4 MG, BID, ORAL
     Route: 048
     Dates: start: 20090513, end: 20090605
  4. OPALMON (LIMAPROST) [Concomitant]
  5. LORCAM (LORNOXICAM) [Concomitant]
  6. SELBEX (TEPRENONE) [Concomitant]
  7. ALLOZYM [Concomitant]
  8. ETIZOLAM (ETIZOLAM) [Concomitant]
  9. THEOLONG TABLET [Concomitant]
  10. ERYTHROCIN (ERYTHROMYCIN ETHYLSUCCINATE) TABLET [Concomitant]
  11. MUCODYNE (CARBOCISTEINE) TABLET [Concomitant]
  12. LASIX [Concomitant]
  13. AMOBAN (ZOPICLONE) TABLET [Concomitant]
  14. LANSOPRAZOLE [Concomitant]
  15. LAXOBERON (SODIUM PICOSULFATE) TABLET [Concomitant]
  16. KAMAG G (MAGNESIUM OXIDE) [Concomitant]
  17. PURSENNID (SENNOSIDE A+B) TABLET [Concomitant]
  18. TERSIGAN (OXITROPIUM BROMIDE) TABLET [Concomitant]
  19. TELEMINSOFT (BISACODYL) SUPPOSITORY [Concomitant]

REACTIONS (2)
  - BRADYCARDIA [None]
  - CARDIAC FAILURE [None]
